FAERS Safety Report 7394623-8 (Version None)
Quarter: 2011Q2

REPORT INFORMATION
  Report Type: 
  Country: None (occurrence: None)
  Receive Date: 20110405
  Receipt Date: 20110328
  Transmission Date: 20111010
  Serious: Yes (Other)
  Sender: FDA-Public Use
  Company Number: US-ASTRAZENECA-2007UW21664

PATIENT
  Age: 15411 Day
  Sex: Female
  Weight: 129.3 kg

DRUGS (60)
  1. SEROQUEL [Suspect]
     Indication: BIPOLAR DISORDER
     Dosage: 25 TO 50 MG
     Route: 048
     Dates: start: 20040305
  2. SEROQUEL [Suspect]
     Dosage: 25 TO 100 MG
     Route: 048
     Dates: start: 20040305, end: 20070423
  3. ZOLOFT [Concomitant]
     Dates: start: 20040305
  4. SEROQUEL [Suspect]
     Dosage: 25 TO 100 MG
     Route: 048
     Dates: start: 20040305, end: 20070423
  5. SEROQUEL [Suspect]
     Dosage: 25 TO 100 MG
     Route: 048
     Dates: start: 20040305, end: 20070423
  6. SEROQUEL [Suspect]
     Dosage: 25 TO 100 MG
     Route: 048
  7. GUAIFENESIN [Concomitant]
  8. PROPOXY [Concomitant]
  9. PROVENTIL-HFA [Concomitant]
  10. PRILOSEC [Concomitant]
  11. FLUCONAZOLE [Concomitant]
  12. FAMOTIDINE [Concomitant]
  13. SEROQUEL [Suspect]
     Indication: ANXIETY
     Dosage: 25 TO 50 MG
     Route: 048
     Dates: start: 20040305
  14. SEROQUEL [Suspect]
     Dosage: 25 TO 100 MG
     Route: 048
     Dates: start: 20040305, end: 20070423
  15. SEROQUEL [Suspect]
     Dosage: 25 TO 100 MG
     Route: 048
  16. ZOLOFT [Concomitant]
     Dates: start: 20030319
  17. POTASSIUM CL [Concomitant]
  18. AMBIEN [Concomitant]
     Dates: start: 19980101
  19. SEROQUEL [Suspect]
     Indication: SLEEP DISORDER
     Dosage: 25 TO 50 MG
     Route: 048
     Dates: start: 20040305
  20. CLIMARA [Concomitant]
  21. AVAPRO [Concomitant]
     Dates: start: 20041115
  22. ZOLOFT [Concomitant]
     Dates: start: 19980101
  23. IBUPROFEN [Concomitant]
     Dosage: 800 MG TAB TID PRN WITH FOOD
     Dates: start: 20041115
  24. HYDROCODONE [Concomitant]
  25. AMOXICILLIN AND CLAVULANATE POTASSIUM [Concomitant]
  26. BACTRIM DS [Concomitant]
     Dosage: TWO TIMES A DAY
     Dates: start: 20080501
  27. MONOPRIL [Concomitant]
     Dates: start: 19970101
  28. PERCOCET [Concomitant]
     Indication: PAIN
     Dates: start: 20030319
  29. HYDROCHLOROTHIAZIDE [Concomitant]
     Indication: BLOOD PRESSURE
     Dates: start: 20030319
  30. IBUPROFEN [Concomitant]
     Indication: PAIN
     Dates: start: 20030319
  31. GEODON [Concomitant]
  32. METFORMIN [Concomitant]
  33. PREDNISONE [Concomitant]
  34. COZAAR [Concomitant]
     Dates: start: 20030319
  35. SEROQUEL [Suspect]
     Dosage: 25 TO 300 MG
     Route: 048
  36. SEROQUEL [Suspect]
     Dosage: 25 TO 100 MG
     Route: 048
  37. SEROQUEL [Suspect]
     Dosage: 25 TO 100 MG
     Route: 048
  38. SYNTHROID [Concomitant]
     Dates: start: 20030319
  39. RANITIDINE [Concomitant]
  40. PROMETHAZINE W/ CODEINE [Concomitant]
  41. CEPHALEXIN [Concomitant]
  42. IMIPRAMINE [Concomitant]
     Indication: ANTIDEPRESSANT THERAPY
     Dosage: 50 MG TO 150 MG
     Route: 048
     Dates: start: 19970205
  43. SEROQUEL [Suspect]
     Dosage: 25 TO 300 MG
     Route: 048
  44. SEROQUEL [Suspect]
     Dosage: 25 TO 300 MG
     Route: 048
  45. SYNTHROID [Concomitant]
     Dates: start: 20041115
  46. FERROUS SULFATE TAB [Concomitant]
     Dates: start: 20030319
  47. BIAXIN [Concomitant]
  48. DIPHENHYDRAMINE HCL [Concomitant]
  49. TAMIFLU [Concomitant]
  50. NYSTATIN [Concomitant]
  51. CLOZARIL [Concomitant]
     Dates: start: 20070101
  52. SEROQUEL [Suspect]
     Indication: DEPRESSION
     Dosage: 25 TO 50 MG
     Route: 048
     Dates: start: 20040305
  53. SEROQUEL [Suspect]
     Dosage: 25 TO 300 MG
     Route: 048
  54. HYDROCHLOROTHIAZIDE [Concomitant]
     Dates: start: 20041115
  55. TRILEPTAL [Concomitant]
     Indication: ANGER
     Dates: start: 20040305
  56. ZITHROMAX / ZMAX [Concomitant]
  57. GLIMEPIRIDE [Concomitant]
  58. LEVAQUIN [Concomitant]
  59. DIOVAN [Concomitant]
  60. NORVASC [Concomitant]
     Dates: start: 20041115

REACTIONS (36)
  - ARTHROPOD BITE [None]
  - ABDOMINAL DISCOMFORT [None]
  - VOMITING [None]
  - BLOOD CHOLESTEROL INCREASED [None]
  - HYPERLIPIDAEMIA [None]
  - GLUCOSE TOLERANCE IMPAIRED [None]
  - CARBOHYDRATE METABOLISM DISORDER [None]
  - SUBCUTANEOUS ABSCESS [None]
  - DERMATITIS [None]
  - ABDOMINAL PAIN UPPER [None]
  - PAIN [None]
  - RELAPSING FEVER [None]
  - ARTHRALGIA [None]
  - INFLUENZA [None]
  - HEADACHE [None]
  - BASEDOW'S DISEASE [None]
  - SINUSITIS [None]
  - BRONCHITIS [None]
  - HYPOGLYCAEMIA [None]
  - HYPERHIDROSIS [None]
  - NAUSEA [None]
  - WEIGHT INCREASED [None]
  - HYPERTHYROIDISM [None]
  - TYPE 2 DIABETES MELLITUS [None]
  - HERPES SIMPLEX [None]
  - METASTASIS [None]
  - OBESITY [None]
  - VULVOVAGINAL CANDIDIASIS [None]
  - NOCTURIA [None]
  - INFECTIOUS MONONUCLEOSIS [None]
  - TOXOPLASMOSIS [None]
  - WHEEZING [None]
  - ANAEMIA [None]
  - OROPHARYNGEAL PAIN [None]
  - DIARRHOEA [None]
  - DIABETIC COMPLICATION [None]
